FAERS Safety Report 4763342-6 (Version None)
Quarter: 2005Q3

REPORT INFORMATION
  Report Type: 
  Country: None (occurrence: None)
  Receive Date: 20050826
  Receipt Date: 20041101
  Transmission Date: 20060218
  Serious: Yes (Other)
  Sender: FDA-Public Use
  Company Number: USA-2004-0015615

PATIENT
  Age: 60 Year
  Sex: Female
  Weight: 58.5 kg

DRUGS (3)
  1. OXYCONTIN [Suspect]
     Indication: PAIN
     Dosage: 20 MG, BID
     Dates: start: 19970101
  2. NEURONTIN [Concomitant]
  3. ULTRAM [Concomitant]

REACTIONS (2)
  - DRUG DEPENDENCE [None]
  - DRUG TOLERANCE [None]
